FAERS Safety Report 6634275-5 (Version None)
Quarter: 2010Q1

REPORT INFORMATION
  Report Type: 
  Country: None (occurrence: None)
  Receive Date: 20100315
  Receipt Date: 20100309
  Transmission Date: 20100710
  Serious: Yes (Death, Life-Threatening, Disabling, Other)
  Sender: FDA-Public Use
  Company Number: PHHY2010JP07023

PATIENT
  Sex: Male
  Weight: 50 kg

DRUGS (13)
  1. ICL670A ICL+DISTAB [Suspect]
     Indication: IRON OVERLOAD
     Dosage: 1000 MG DAILY
     Route: 048
     Dates: start: 20081210, end: 20090119
  2. GLAKAY [Concomitant]
     Dosage: 30 MG DAILY
     Route: 048
     Dates: start: 20081210, end: 20090119
  3. PRIMOBOLAN [Concomitant]
     Dosage: 10 MG DAILY
     Route: 048
     Dates: start: 20081210, end: 20090119
  4. BAKTAR [Concomitant]
     Indication: PROPHYLAXIS
     Dosage: 2 DF DAILY
     Route: 048
     Dates: start: 20081210, end: 20090119
  5. DIFLUCAN [Concomitant]
     Dosage: 200 MG DAILY
     Route: 048
     Dates: start: 20081210, end: 20090119
  6. PROMAC [Concomitant]
     Indication: PROPHYLAXIS
     Dosage: 150 MG DAILY
     Route: 048
     Dates: start: 20081210, end: 20090119
  7. BARACLUDE [Concomitant]
     Dosage: 0.5 MG DAILY
     Route: 048
     Dates: start: 20081210, end: 20090119
  8. CYTOTEC [Concomitant]
     Indication: PROPHYLAXIS
     Dosage: 2 DF DAILY
     Route: 048
     Dates: start: 20081210, end: 20090119
  9. HACHIAZULE [Concomitant]
     Indication: PROPHYLAXIS
     Dosage: UNK
     Route: 050
     Dates: start: 20081210, end: 20090119
  10. WATER FOR INJECTION [Concomitant]
     Indication: PROPHYLAXIS
     Dosage: 300 ML DAILY
     Route: 042
     Dates: start: 20081210, end: 20090119
  11. CYLOCIDE [Concomitant]
     Dosage: 30 MG DAILY
     Route: 042
     Dates: start: 20081210, end: 20090119
  12. VEPESID [Concomitant]
     Dosage: 50 MG DAILY
     Route: 042
     Dates: start: 20081216, end: 20081222
  13. NASEA [Concomitant]
     Dosage: 0.3 MG DAILY
     Route: 042
     Dates: start: 20081216, end: 20081222

REACTIONS (11)
  - BLOOD CREATININE INCREASED [None]
  - BLOOD LACTATE DEHYDROGENASE INCREASED [None]
  - BLOOD UREA INCREASED [None]
  - COMA [None]
  - LYMPHOCYTE COUNT DECREASED [None]
  - MALIGNANT NEOPLASM PROGRESSION [None]
  - NEUTROPHIL COUNT DECREASED [None]
  - RENAL DISORDER [None]
  - SERUM FERRITIN INCREASED [None]
  - SOMNOLENCE [None]
  - WHITE BLOOD CELL COUNT DECREASED [None]
